FAERS Safety Report 4670365-4 (Version None)
Quarter: 2005Q2

REPORT INFORMATION
  Report Type: 
  Country: None (occurrence: None)
  Receive Date: 20050520
  Receipt Date: 20050509
  Transmission Date: 20051028
  Serious: Yes (Death)
  Sender: FDA-Public Use
  Company Number: BRO-008668

PATIENT
  Age: 62 Year
  Sex: Male

DRUGS (2)
  1. GADOTERIDOL / PROHANCE (BATCH #(S): 4K65094) [Suspect]
     Indication: ANGIOGRAM
     Dosage: 10 ML
     Route: 042
     Dates: start: 20050427, end: 20050427
  2. VALIUM [Concomitant]

REACTIONS (3)
  - CIRCULATORY COLLAPSE [None]
  - COUGH [None]
  - DYSPNOEA [None]
